FAERS Safety Report 6508540-6 (Version None)
Quarter: 2009Q4

REPORT INFORMATION
  Report Type: 
  Country: None (occurrence: None)
  Receive Date: 20091221
  Receipt Date: 20081126
  Transmission Date: 20100525
  Serious: No
  Sender: FDA-Public Use
  Company Number: US-ASTRAZENECA-2008UW26540

PATIENT
  Age: 47 Year
  Sex: Female
  Weight: 69.9 kg

DRUGS (4)
  1. CRESTOR [Suspect]
     Indication: BLOOD TRIGLYCERIDES INCREASED
     Route: 048
     Dates: start: 20070201, end: 20080801
  2. CRESTOR [Suspect]
     Indication: BLOOD CHOLESTEROL INCREASED
     Route: 048
     Dates: start: 20070201, end: 20080801
  3. ASPIRIN [Concomitant]
  4. PREFEST [Concomitant]
     Indication: HORMONE REPLACEMENT THERAPY

REACTIONS (1)
  - BLOOD TRIGLYCERIDES INCREASED [None]
